FAERS Safety Report 5867611-8 (Version None)
Quarter: 2008Q3

REPORT INFORMATION
  Report Type: 
  Country: None (occurrence: None)
  Receive Date: 20080902
  Receipt Date: 20071107
  Transmission Date: 20090109
  Serious: No
  Sender: FDA-Public Use
  Company Number: US-ABBOTT-07P-163-0424512-00

PATIENT
  Sex: Female
  Weight: 74.91 kg

DRUGS (2)
  1. DEPAKOTE ER [Suspect]
     Indication: MIGRAINE
     Route: 048
     Dates: start: 20070301
  2. TOPIRAMATE [Concomitant]
     Indication: MIGRAINE
     Route: 048
     Dates: start: 20070101

REACTIONS (1)
  - ALOPECIA [None]
